FAERS Safety Report 6913320-3 (Version None)
Quarter: 2010Q3

REPORT INFORMATION
  Report Type: 
  Country: None (occurrence: None)
  Receive Date: 20100809
  Receipt Date: 20100731
  Transmission Date: 20110219
  Serious: Yes (Hospitalization)
  Sender: FDA-Public Use
  Company Number: JP-ELI_LILLY_AND_COMPANY-JP201008000042

PATIENT
  Sex: Female

DRUGS (1)
  1. HUMALOG [Suspect]
     Route: 058

REACTIONS (1)
  - PANCREATIC DISORDER [None]
